FAERS Safety Report 6208666-0 (Version None)
Quarter: 2009Q2

REPORT INFORMATION
  Report Type: 
  Country: None (occurrence: None)
  Receive Date: 20090529
  Receipt Date: 20090519
  Transmission Date: 20091009
  Serious: Yes (Hospitalization)
  Sender: FDA-Public Use
  Company Number: US-ABBOTT-09P-163-0568128-00

PATIENT
  Sex: Male
  Weight: 79 kg

DRUGS (6)
  1. TRILIPIX [Suspect]
     Indication: DYSLIPIDAEMIA
     Route: 048
     Dates: start: 20090320, end: 20090329
  2. TRILIPIX [Suspect]
     Route: 048
     Dates: start: 20090401, end: 20090402
  3. FISH OIL [Concomitant]
     Indication: BLOOD CHOLESTEROL
     Dates: start: 20080301, end: 20090119
  4. PRAVASTATIN [Concomitant]
     Indication: BLOOD CHOLESTEROL
     Dates: start: 20080301, end: 20081201
  5. CLONAZEPAM [Concomitant]
     Indication: DEPRESSION
     Dates: start: 20070101
  6. ZOLPIDEM TARTRATE [Concomitant]
     Indication: DEPRESSION
     Dates: start: 20070101

REACTIONS (1)
  - CHEST PAIN [None]
